FAERS Safety Report 22341288 (Version 1)
Quarter: 2023Q2

REPORT INFORMATION
  Report Type: Spontaneous
  Country: None (occurrence: GB)
  Receive Date: 20230518
  Receipt Date: 20230518
  Transmission Date: 20230722
  Serious: Yes (Other)
  Sender: FDA-Public Use
  Company Number: GB-Canton Laboratories, LLC-2141689

PATIENT

DRUGS (2)
  1. NAPROSYN [Suspect]
     Active Substance: NAPROXEN
     Indication: Arthritis
  2. AMITRIPTYLINE HYDROCHLORIDE [Concomitant]
     Active Substance: AMITRIPTYLINE HYDROCHLORIDE

REACTIONS (9)
  - Cystitis [None]
  - Bronchitis [Unknown]
  - Influenza [Unknown]
  - Internal haemorrhage [Unknown]
  - Kidney infection [Unknown]
  - Malaise [Unknown]
  - Pneumonia [Unknown]
  - Tonsillitis [Unknown]
  - Illness [Unknown]
